FAERS Safety Report 9677206 (Version 2)
Quarter: 2013Q4

REPORT INFORMATION
  Report Type: Spontaneous
  Country: BE (occurrence: BE)
  Receive Date: 20131108
  Receipt Date: 20131108
  Transmission Date: 20140711
  Serious: Yes (Death)
  Sender: FDA-Public Use
  Company Number: BE-BAXTER-2013BAX037217

PATIENT
  Age: 75 Year
  Sex: Male

DRUGS (2)
  1. EXTRANEAL, SOLUTION POUR DIALYSE P?RITON?ALE [Suspect]
     Indication: PERITONEAL DIALYSIS
     Route: 033
     Dates: end: 20130920
  2. PHYSIONEAL 40 GLUCOSE 1.36% [Suspect]
     Indication: PERITONEAL DIALYSIS
     Route: 033
     Dates: end: 20130920

REACTIONS (1)
  - Death [Fatal]
